FAERS Safety Report 9736731 (Version 2)
Quarter: 2013Q4

REPORT INFORMATION
  Report Type: Spontaneous
  Country: US (occurrence: US)
  Receive Date: 20131206
  Receipt Date: 20131226
  Transmission Date: 20140711
  Serious: Yes (Other)
  Sender: FDA-Public Use
  Company Number: PHEH2013US025009

PATIENT
  Sex: Female

DRUGS (3)
  1. EXELON PATCH [Suspect]
     Dosage: 9.5 MG, UNK
     Route: 062
  2. LISINOPRIL [Concomitant]
     Dosage: UNK UKN, DAILY
  3. FENOFIBRATE [Concomitant]
     Dosage: UNK UKN, UNK

REACTIONS (3)
  - Foot fracture [Unknown]
  - Gait disturbance [Unknown]
  - Fall [Recovered/Resolved]
